FAERS Safety Report 15726957 (Version 1)
Quarter: 2018Q4

REPORT INFORMATION
  Report Type: Report from Study
  Country: None (occurrence: US)
  Receive Date: 20181217
  Receipt Date: 20181217
  Transmission Date: 20190205
  Serious: Yes (Other)
  Sender: FDA-Public Use
  Company Number: US-ABBVIE-18K-163-2472729-00

PATIENT
  Age: 29 Year
  Sex: Female

DRUGS (1)
  1. HUMIRA [Suspect]
     Active Substance: ADALIMUMAB
     Indication: CROHN^S DISEASE
     Route: 058

REACTIONS (5)
  - Appendicectomy [Recovered/Resolved]
  - Bone decalcification [Recovering/Resolving]
  - Tendonitis [Not Recovered/Not Resolved]
  - Tendon laxity [Unknown]
  - Exostosis [Recovering/Resolving]

NARRATIVE: CASE EVENT DATE: 2017
